FAERS Safety Report 24617568 (Version 2)
Quarter: 2024Q4

REPORT INFORMATION
  Report Type: Spontaneous
  Country: CN (occurrence: CN)
  Receive Date: 20241114
  Receipt Date: 20241118
  Transmission Date: 20250114
  Serious: Yes (Other)
  Sender: Kenvue
  Company Number: CN-KENVUE CANADA INC.-20241102558

PATIENT

DRUGS (2)
  1. IBUPROFEN [Suspect]
     Active Substance: IBUPROFEN
     Indication: Febrile convulsion
     Dosage: 5 - 10 MG/KG
     Route: 048
  2. DIAZEPAM [Suspect]
     Active Substance: DIAZEPAM
     Indication: Febrile convulsion
     Dosage: 0.2 -0.3 MG/KG
     Route: 048

REACTIONS (5)
  - Respiratory depression [Unknown]
  - Off label use [Unknown]
  - Therapeutic response unexpected [Unknown]
  - Diarrhoea [Unknown]
  - Somnolence [Unknown]
